FAERS Safety Report 7942721-X (Version None)
Quarter: 2011Q4

REPORT INFORMATION
  Report Type: 
  Country: None (occurrence: None)
  Receive Date: 20111114
  Receipt Date: 20110111
  Transmission Date: 20120403
  Serious: Yes (Hospitalization)
  Sender: FDA-Public Use
  Company Number: 2011S1000028

PATIENT
  Age: 60 Year
  Sex: Female

DRUGS (2)
  1. CUBICIN [Suspect]
  2. PROGRAF [Suspect]
     Indication: IMMUNOSUPPRESSION
     Dosage: 3 MG;BID
     Dates: start: 20090816

REACTIONS (1)
  - RHABDOMYOLYSIS [None]
